FAERS Safety Report 5694753-2 (Version None)
Quarter: 2008Q2

REPORT INFORMATION
  Report Type: 
  Country: None (occurrence: None)
  Receive Date: 20080404
  Receipt Date: 20080325
  Transmission Date: 20081010
  Serious: Yes (Other)
  Sender: FDA-Public Use
  Company Number: US-JNJFOC-20080400601

PATIENT

DRUGS (2)
  1. ASPIRIN [Suspect]
     Indication: ANTIPLATELET THERAPY
  2. UNSPECIFIED ORAL ANTICOAGULANT [Suspect]
     Indication: ANTICOAGULANT THERAPY

REACTIONS (1)
  - HAEMORRHAGE [None]
